FAERS Safety Report 8265222-0 (Version None)
Quarter: 2012Q2

REPORT INFORMATION
  Report Type: 
  Country: None (occurrence: None)
  Receive Date: 20120406
  Receipt Date: 20120327
  Transmission Date: 20120825
  Serious: Yes (Hospitalization)
  Sender: FDA-Public Use
  Company Number: TR-AMGEN-TURSP2011066292

PATIENT
  Age: 45 Year
  Sex: Male

DRUGS (2)
  1. ENBREL [Suspect]
     Indication: RHEUMATOID ARTHRITIS
     Dosage: 50 MG, WEEKLY
     Route: 058
     Dates: start: 20110921, end: 20111105
  2. ENBREL [Suspect]
     Dosage: 50 MG, WEEKLY
     Route: 058
     Dates: end: 20111121

REACTIONS (7)
  - MUSCULOSKELETAL STIFFNESS [None]
  - INFECTION [None]
  - PYREXIA [None]
  - INFLUENZA [None]
  - INJECTION SITE VESICLES [None]
  - OEDEMA PERIPHERAL [None]
  - ARTHRALGIA [None]
